FAERS Safety Report 18516608 (Version 1)
Quarter: 2020Q4

REPORT INFORMATION
  Report Type: Spontaneous
  Country: US (occurrence: US)
  Receive Date: 20201117
  Receipt Date: 20201117
  Transmission Date: 20210114
  Serious: Yes (Other)
  Sender: FDA-Public Use
  Company Number: None

PATIENT
  Age: 65 Year
  Sex: Female
  Weight: 81.65 kg

DRUGS (6)
  1. MEDTRONIC PACEMAKER [Concomitant]
  2. METOPROLOL TART [Concomitant]
     Active Substance: METOPROLOL TARTRATE
  3. TELMISARTAN. [Concomitant]
     Active Substance: TELMISARTAN
  4. REPATHA [Suspect]
     Active Substance: EVOLOCUMAB
     Indication: BLOOD CHOLESTEROL INCREASED
     Dosage: ?          QUANTITY:1 INJECTION;OTHER ROUTE:INJECTION?
     Dates: start: 20190404, end: 20190516
  5. FISH OIL [Concomitant]
     Active Substance: FISH OIL
  6. WARFARIN [Concomitant]
     Active Substance: WARFARIN

REACTIONS (7)
  - Asthenia [None]
  - Mastication disorder [None]
  - Toothache [None]
  - Hyperhidrosis [None]
  - Hypersensitivity [None]
  - Illness [None]
  - Impaired driving ability [None]

NARRATIVE: CASE EVENT DATE: 20190516
